FAERS Safety Report 4575849-5 (Version None)
Quarter: 2005Q1

REPORT INFORMATION
  Report Type: 
  Country: None (occurrence: None)
  Receive Date: 20050201
  Receipt Date: 20050201
  Transmission Date: 20050727
  Serious: Yes (Hospitalization)
  Sender: FDA-Public Use
  Company Number: None

PATIENT
  Age: 74 Year
  Sex: Male

DRUGS (3)
  1. PACLITAXEL [Suspect]
     Indication: LUNG NEOPLASM
     Dosage: 93 MG ONCE WEEKLY INTRAVENOUS
     Route: 042
     Dates: start: 20041130, end: 20050118
  2. CARBOPLATIN [Suspect]
     Indication: LUNG NEOPLASM
     Dosage: 160 MG ONCE WEEKLY INTRAVENOUS
     Route: 042
     Dates: start: 20041130, end: 20050118
  3. EXTERNAL BEAM RADIATION THERAPY [Concomitant]

REACTIONS (3)
  - DEHYDRATION [None]
  - LETHARGY [None]
  - PNEUMONIA [None]
